FAERS Safety Report 18188822 (Version 1)
Quarter: 2020Q3

REPORT INFORMATION
  Report Type: Report from Study
  Country: NL (occurrence: NL)
  Receive Date: 20200825
  Receipt Date: 20200825
  Transmission Date: 20201103
  Serious: Yes (Hospitalization)
  Sender: FDA-Public Use
  Company Number: NL-ROCHE-2662540

PATIENT
  Age: 75 Year
  Sex: Female

DRUGS (9)
  1. BEVACIZUMAB. [Suspect]
     Active Substance: BEVACIZUMAB
     Indication: NON-SMALL CELL LUNG CANCER
     Dosage: ONCE
     Route: 042
     Dates: start: 20200723
  2. CALCICHEW [Concomitant]
     Active Substance: CALCIUM CARBONATE
     Dosage: 500 MG/ 400 IU 1 X 2, ONGOING
     Dates: start: 20200812
  3. CARBOPLATIN. [Suspect]
     Active Substance: CARBOPLATIN
     Indication: NON-SMALL CELL LUNG CANCER
     Dosage: ONCE
     Route: 042
     Dates: start: 20200723
  4. ATORVASTATIN [Concomitant]
     Active Substance: ATORVASTATIN
     Dosage: ONGOING
  5. OMEPRAZOLE. [Concomitant]
     Active Substance: OMEPRAZOLE
     Dosage: ONGOING
     Dates: start: 20171101
  6. FOLIUMZUUR [Concomitant]
     Active Substance: FOLIC ACID
     Dosage: 1X1
     Dates: start: 202006
  7. PACLITAXEL. [Suspect]
     Active Substance: PACLITAXEL
     Indication: NON-SMALL CELL LUNG CANCER
     Dosage: ONCE
     Route: 042
     Dates: start: 20200723
  8. HYDROCHLOROTHIAZIDE. [Concomitant]
     Active Substance: HYDROCHLOROTHIAZIDE
     Dosage: ONGOING
     Dates: start: 2017
  9. MICARDIS [Concomitant]
     Active Substance: TELMISARTAN
     Dosage: 1 X 1 ONGOING

REACTIONS (3)
  - Dehydration [Recovered/Resolved]
  - Anaemia [Recovered/Resolved]
  - Peroneal nerve palsy [Not Recovered/Not Resolved]

NARRATIVE: CASE EVENT DATE: 20200811
